FAERS Safety Report 7374318-7 (Version None)
Quarter: 2011Q1

REPORT INFORMATION
  Report Type: 
  Country: None (occurrence: None)
  Receive Date: 20110325
  Receipt Date: 20110317
  Transmission Date: 20110831
  Serious: Yes (Other)
  Sender: FDA-Public Use
  Company Number: US-US-EMD SERONO, INC.-238672J08USA

PATIENT
  Sex: Female

DRUGS (2)
  1. REBIF [Suspect]
     Indication: MULTIPLE SCLEROSIS
     Route: 058
     Dates: start: 20070606
  2. REBIF [Suspect]
     Route: 058

REACTIONS (4)
  - FACIAL PAIN [None]
  - SPEECH DISORDER [None]
  - GAIT DISTURBANCE [None]
  - VIITH NERVE PARALYSIS [None]
